FAERS Safety Report 21223557 (Version 6)
Quarter: 2023Q1

REPORT INFORMATION
  Report Type: Report from Study
  Country: CA (occurrence: CA)
  Receive Date: 20220817
  Receipt Date: 20230314
  Transmission Date: 20230417
  Serious: Yes (Hospitalization, Other)
  Sender: FDA-Public Use
  Company Number: CA-OTSUKA-2022_040072

PATIENT
  Sex: Male

DRUGS (4)
  1. CEDAZURIDINE\DECITABINE [Suspect]
     Active Substance: CEDAZURIDINE\DECITABINE
     Indication: Myelodysplastic syndrome
     Dosage: UNK
     Route: 065
     Dates: start: 20220615
  2. CEDAZURIDINE\DECITABINE [Suspect]
     Active Substance: CEDAZURIDINE\DECITABINE
     Dosage: 3 TABLETS (DAYS 1 THROUGH 3) PER CYCLE
     Route: 065
  3. CEDAZURIDINE\DECITABINE [Suspect]
     Active Substance: CEDAZURIDINE\DECITABINE
     Dosage: 3 PILLS ON DAY 1, 3 AND 5 PER CYCLE.
     Route: 065
  4. CEDAZURIDINE\DECITABINE [Suspect]
     Active Substance: CEDAZURIDINE\DECITABINE
     Dosage: 4 DF, 4 PILLS/CYCLE
     Route: 065

REACTIONS (7)
  - Full blood count abnormal [Unknown]
  - Fracture [Unknown]
  - Haemoglobin decreased [Unknown]
  - Confusional state [Unknown]
  - Dizziness [Unknown]
  - Product use issue [Unknown]
  - Therapy interrupted [Unknown]
